FAERS Safety Report 12552193 (Version 1)
Quarter: 2016Q3

REPORT INFORMATION
  Report Type: Spontaneous
  Country: US (occurrence: None)
  Receive Date: 20160712
  Receipt Date: 20160712
  Transmission Date: 20161109
  Serious: Yes (Other)
  Sender: FDA-Public Use
  Company Number: None

PATIENT
  Age: 73 Year
  Sex: Female

DRUGS (1)
  1. LETROZOLE 2.5MG TEVA PHARMACEUTICALS USA INC [Suspect]
     Active Substance: LETROZOLE
     Indication: LUNG NEOPLASM MALIGNANT
     Route: 048
     Dates: start: 20160505

REACTIONS (2)
  - Asthenia [None]
  - Crying [None]
